FAERS Safety Report 20812194 (Version 8)
Quarter: 2022Q4

REPORT INFORMATION
  Report Type: Spontaneous
  Country: CA (occurrence: CA)
  Receive Date: 20220511
  Receipt Date: 20221119
  Transmission Date: 20230112
  Serious: Yes (Other)
  Sender: FDA-Public Use
  Company Number: CA-CELLTRION INC.-2021CA018606

PATIENT

DRUGS (12)
  1. INFLECTRA [Suspect]
     Active Substance: INFLIXIMAB-DYYB
     Indication: Crohn^s disease
     Dosage: 375  MG INDUCTION AT WEEK 0, 2 AND 6, THEN EVERY 6 WEEKS
     Route: 042
     Dates: start: 20220114, end: 20220829
  2. INFLECTRA [Suspect]
     Active Substance: INFLIXIMAB-DYYB
     Indication: Ankylosing spondylitis
     Dosage: 375  MG INDUCTION AT WEEK 0, 2 AND 6, THEN EVERY 6 WEEKS
     Route: 042
     Dates: start: 20220114, end: 20220829
  3. INFLECTRA [Suspect]
     Active Substance: INFLIXIMAB-DYYB
     Dosage: 375 MG INDUCTION AT WEEK 0, 2 AND 6, THEN EVERY 6 WEEKS
     Route: 042
     Dates: start: 20220131
  4. INFLECTRA [Suspect]
     Active Substance: INFLIXIMAB-DYYB
     Dosage: 375 MG INDUCTION AT WEEK 0, 2 AND 6, THEN EVERY 6 WEEKS
     Route: 042
     Dates: start: 20220301
  5. INFLECTRA [Suspect]
     Active Substance: INFLIXIMAB-DYYB
     Dosage: 375 MG INDUCTION AT WEEK 0, 2 AND 6, THEN EVERY 6 WEEKS
     Route: 042
     Dates: start: 20220426
  6. INFLECTRA [Suspect]
     Active Substance: INFLIXIMAB-DYYB
     Dosage: 375 MG INDUCTION AT WEEK 0, 2 AND 6, THEN EVERY 6 WEEKS
     Route: 042
     Dates: start: 20220426
  7. INFLECTRA [Suspect]
     Active Substance: INFLIXIMAB-DYYB
     Dosage: 375 MG INDUCTION AT WEEK 0, 2 AND 6, THEN EVERY 6 WEEKS
     Route: 042
     Dates: start: 20220608
  8. INFLECTRA [Suspect]
     Active Substance: INFLIXIMAB-DYYB
     Dosage: 375 MG INDUCTION AT WEEK 0, 2 AND 6, THEN EVERY 6 WEEKS
     Route: 042
     Dates: start: 20220719
  9. INFLECTRA [Suspect]
     Active Substance: INFLIXIMAB-DYYB
     Dosage: 375 MG INDUCTION AT WEEK 0, 2 AND 6, THEN EVERY 6 WEEKS
     Route: 042
     Dates: start: 20220829
  10. INFLECTRA [Suspect]
     Active Substance: INFLIXIMAB-DYYB
     Dosage: 375 MG, EVERY 5 WEEKS
     Route: 042
     Dates: start: 20221006
  11. INFLECTRA [Suspect]
     Active Substance: INFLIXIMAB-DYYB
     Dosage: 375 MG, EVERY 5 WEEKS
     Route: 042
     Dates: start: 20221006
  12. INFLECTRA [Suspect]
     Active Substance: INFLIXIMAB-DYYB
     Dosage: 400 MG, EVERY 5 WEEKS(SUPPOSED TO RECEIVE A FIXED DOSE OF 375MG)
     Route: 042
     Dates: start: 20221109

REACTIONS (12)
  - Weight increased [Unknown]
  - Off label use [Unknown]
  - Off label use [Unknown]
  - Off label use [Unknown]
  - Intentional product use issue [Unknown]
  - Inappropriate schedule of product administration [Unknown]
  - Incorrect dose administered [Unknown]
  - Arthralgia [Unknown]
  - Condition aggravated [Recovering/Resolving]
  - Aphthous ulcer [Unknown]
  - Nausea [Unknown]
  - Arthralgia [Not Recovered/Not Resolved]

NARRATIVE: CASE EVENT DATE: 20220101
